FAERS Safety Report 8815157 (Version 2)
Quarter: 2012Q4

REPORT INFORMATION
  Report Type: 
  Country: US (occurrence: US)
  Receive Date: 20120928
  Receipt Date: 20120928
  Transmission Date: 20130627
  Serious: Yes (Hospitalization, Other)
  Sender: FDA-Public Use
  Company Number: US-JNJFOC-20120811393

PATIENT
  Sex: Female
  Weight: 54.43 kg

DRUGS (4)
  1. REMICADE [Suspect]
     Indication: CROHN^S DISEASE
     Route: 042
     Dates: start: 2011
  2. REMICADE [Suspect]
     Indication: CROHN^S DISEASE
     Route: 042
     Dates: start: 2009, end: 2011
  3. SUSTIVA [Suspect]
     Indication: HIV INFECTION
     Route: 065
     Dates: start: 2011, end: 201209
  4. TRAVAD [Concomitant]
     Route: 065

REACTIONS (12)
  - Abnormal loss of weight [Not Recovered/Not Resolved]
  - Oophorectomy [Unknown]
  - Fistula [Recovered/Resolved]
  - Appendicectomy [Unknown]
  - Crohn^s disease [Recovering/Resolving]
  - Oesophagitis [Not Recovered/Not Resolved]
  - Memory impairment [Recovering/Resolving]
  - Nightmare [Unknown]
  - T-lymphocyte count decreased [Unknown]
  - Mouth ulceration [Recovering/Resolving]
  - Pyoderma gangrenosum [Not Recovered/Not Resolved]
  - Therapeutic response unexpected [Unknown]
